FAERS Safety Report 8624574-X (Version None)
Quarter: 2012Q3

REPORT INFORMATION
  Report Type: 
  Country: None (occurrence: None)
  Receive Date: 20120810
  Receipt Date: 20120725
  Transmission Date: 20120928
  Serious: Yes (Hospitalization, Disabling)
  Sender: FDA-Public Use
  Company Number: 2012MPI00335

PATIENT
  Age: 24 Year
  Sex: Male

DRUGS (4)
  1. RABEPRAZOLE SODIUM [Concomitant]
  2. BACTRIM [Concomitant]
  3. ACYCLOVIR [Concomitant]
  4. BRENTUXIMAB VEDOTIN (BRENTUXIMAB VEDOTIN) INJECTION [Suspect]
     Indication: HODGKIN'S DISEASE
     Dosage: INTRAVENOUS
     Route: 042
     Dates: start: 20110419, end: 20120112

REACTIONS (5)
  - PYREXIA [None]
  - PERIPHERAL SENSORIMOTOR NEUROPATHY [None]
  - ANAEMIA [None]
  - HODGKIN'S DISEASE [None]
  - NEOPLASM MALIGNANT [None]
